FAERS Safety Report 6272369-7 (Version None)
Quarter: 2009Q3

REPORT INFORMATION
  Report Type: 
  Country: None (occurrence: None)
  Receive Date: 20090717
  Receipt Date: 20090708
  Transmission Date: 20100115
  Serious: Yes (Hospitalization)
  Sender: FDA-Public Use
  Company Number: NZ-ASTRAZENECA-2009SE04309

PATIENT
  Age: 23033 Day
  Sex: Male

DRUGS (5)
  1. PRILOSEC [Suspect]
     Route: 048
     Dates: start: 20000301, end: 20000407
  2. TERAZOSIN HCL [Concomitant]
     Route: 048
     Dates: start: 19990701
  3. GLICLAZIDE [Concomitant]
     Route: 048
  4. SINEMET [Concomitant]
     Route: 048
  5. PROPRANOLOL HYDROCHLORIDE [Concomitant]
     Route: 048

REACTIONS (2)
  - CONFUSIONAL STATE [None]
  - DEMENTIA [None]
